APPROVED DRUG PRODUCT: BORTEZOMIB
Active Ingredient: BORTEZOMIB
Strength: 3.5MG/VIAL
Dosage Form/Route: INJECTABLE;INTRAVENOUS, SUBCUTANEOUS
Application: A216528 | Product #001 | TE Code: AP
Applicant: HAINAN SHUANGCHENG PHARMACEUTICALS CO LTD
Approved: Dec 17, 2025 | RLD: No | RS: No | Type: RX